FAERS Safety Report 7685306-5 (Version None)
Quarter: 2011Q3

REPORT INFORMATION
  Report Type: 
  Country: None (occurrence: None)
  Receive Date: 20110816
  Receipt Date: 20110803
  Transmission Date: 20111222
  Serious: Yes (Hospitalization)
  Sender: FDA-Public Use
  Company Number: US-CELGENEUS-163-21880-11080569

PATIENT
  Sex: Male

DRUGS (10)
  1. DEXAMETHASONE [Concomitant]
     Route: 065
  2. TAMSULOSIN HCL [Concomitant]
     Route: 065
  3. REVLIMID [Suspect]
     Dosage: 15 MILLIGRAM
     Route: 048
     Dates: start: 20081101
  4. METOPROLOL SUCCINATE [Concomitant]
     Route: 065
  5. ASCORBIC ACID [Concomitant]
     Route: 065
  6. CALCIUM WITH VITAMIN D [Concomitant]
     Dosage: 500
     Route: 065
  7. FLUCONAZOLE [Concomitant]
     Route: 065
  8. NEXIUM [Concomitant]
     Route: 065
  9. REVLIMID [Suspect]
     Dosage: 25 MILLIGRAM
     Route: 048
     Dates: start: 20110620
  10. VELCADE [Concomitant]
     Route: 065

REACTIONS (2)
  - ABDOMINAL DISTENSION [None]
  - ABDOMINAL PAIN UPPER [None]
